FAERS Safety Report 7280306-1 (Version None)
Quarter: 2011Q1

REPORT INFORMATION
  Report Type: 
  Country: None (occurrence: None)
  Receive Date: 20110208
  Receipt Date: 20110127
  Transmission Date: 20110831
  Serious: Yes (Other)
  Sender: FDA-Public Use
  Company Number: DE-SANOFI-AVENTIS-2011SA005516

PATIENT
  Age: 49 Year
  Weight: 117.2 kg

DRUGS (15)
  1. TORSEMIDE [Concomitant]
     Route: 048
  2. METHIZOL [Concomitant]
     Route: 048
  3. CORONARY VASODILATORS [Concomitant]
     Route: 048
  4. CELLCEPT [Concomitant]
     Route: 048
  5. MULTAQ [Suspect]
     Route: 048
     Dates: start: 20110104, end: 20110113
  6. XIPAMIDE [Concomitant]
     Route: 048
  7. DELIX [Concomitant]
     Route: 048
  8. ALLOPURINOL [Concomitant]
     Dosage: DOSAGE: 1/2 TABLET DAILY
     Route: 048
  9. KALINOR [Concomitant]
     Route: 048
  10. PHENPROCOUMON [Concomitant]
     Dosage: DOSAGE: ACCORDING TO INR
     Route: 048
  11. CERTICAN [Concomitant]
     Route: 048
  12. COTRIM [Concomitant]
     Route: 048
  13. PANTOZOL [Concomitant]
     Route: 048
  14. INSULIN HUMAN [Concomitant]
     Dosage: DOSAGE: ACCORDING TO VALUE
     Route: 065
  15. MAGNESIUM ASPARTATE HYDROCHLORIDE [Concomitant]
     Dosage: DOSAGE: 2X2.5 MMOL THREE TIMES A DAY
     Route: 048

REACTIONS (3)
  - BLOOD CREATININE INCREASED [None]
  - BLOOD UREA INCREASED [None]
  - CONDITION AGGRAVATED [None]
